FAERS Safety Report 8924907 (Version 2)
Quarter: 2012Q4

REPORT INFORMATION
  Report Type: 
  Country: FI (occurrence: FI)
  Receive Date: 20121126
  Receipt Date: 20121210
  Transmission Date: 20130627
  Serious: Yes (Other)
  Sender: FDA-Public Use
  Company Number: FI-US-EMD SERONO, INC.-7177639

PATIENT
  Age: 43 Year
  Sex: Male

DRUGS (2)
  1. REBIF [Suspect]
     Indication: MULTIPLE SCLEROSIS
     Route: 058
     Dates: start: 1999, end: 2000
  2. REBIF [Suspect]
     Route: 058
     Dates: start: 2000, end: 20121203

REACTIONS (1)
  - Pancreatitis [Recovered/Resolved]
